FAERS Safety Report 7274554-4 (Version None)
Quarter: 2011Q1

REPORT INFORMATION
  Report Type: 
  Country: None (occurrence: None)
  Receive Date: 20110204
  Receipt Date: 20110127
  Transmission Date: 20110831
  Serious: Yes (Hospitalization, Other)
  Sender: FDA-Public Use
  Company Number: DE-B.I. PHARMACEUTICALS,INC./RIDGEFIELD-2011-DE-00704DE

PATIENT
  Age: 73 Year
  Sex: Male
  Weight: 80 kg

DRUGS (4)
  1. SPIRIVA [Suspect]
     Dosage: 1 ANZ
     Dates: start: 20050101
  2. ALBUTEROL [Concomitant]
  3. SEREVENT [Concomitant]
  4. ANTIHYPERTENSIVES [Concomitant]

REACTIONS (4)
  - COUGH [None]
  - BODY TEMPERATURE INCREASED [None]
  - PULMONARY HAEMORRHAGE [None]
  - HAEMOPTYSIS [None]
